FAERS Safety Report 6750048-7 (Version None)
Quarter: 2010Q2

REPORT INFORMATION
  Report Type: 
  Country: None (occurrence: None)
  Receive Date: 20100601
  Receipt Date: 20100519
  Transmission Date: 20101027
  Serious: Yes (Other)
  Sender: FDA-Public Use
  Company Number: DE-PFIZER INC-2010055844

PATIENT
  Age: 64 Year
  Sex: Female
  Weight: 64 kg

DRUGS (1)
  1. AROMASIN [Suspect]
     Indication: BREAST CANCER FEMALE
     Dosage: 1 DF, 1X/DAY
     Dates: start: 20100413

REACTIONS (10)
  - ARTHRALGIA [None]
  - BALANCE DISORDER [None]
  - CONDITION AGGRAVATED [None]
  - DEPRESSION [None]
  - HYPERHIDROSIS [None]
  - INSOMNIA [None]
  - JOINT STIFFNESS [None]
  - MIGRAINE [None]
  - NAUSEA [None]
  - SKIN DISORDER [None]
